FAERS Safety Report 9943177 (Version 1)
Quarter: 2014Q1

REPORT INFORMATION
  Report Type: Spontaneous
  Country: US (occurrence: US)
  Receive Date: 20140303
  Receipt Date: 20140303
  Transmission Date: 20141002
  Serious: Yes (Other)
  Sender: FDA-Public Use
  Company Number: US-TAKEDA-2014TUS001416

PATIENT
  Sex: 0

DRUGS (2)
  1. DEXILANT [Suspect]
     Indication: ULCER
     Dosage: 60 MG, QD
     Route: 048
     Dates: start: 201310
  2. LISINOPRIL HCTZ [Concomitant]
     Indication: HYPERTENSION
     Dosage: 20 - 25MG
     Route: 048

REACTIONS (1)
  - Adenoma benign [Recovered/Resolved]
